FAERS Safety Report 8035783-5 (Version None)
Quarter: 2012Q1

REPORT INFORMATION
  Report Type: 
  Country: None (occurrence: None)
  Receive Date: 20120111
  Receipt Date: 20111229
  Transmission Date: 20120608
  Serious: Yes (Other)
  Sender: FDA-Public Use
  Company Number: US-WATSON-2011-22903

PATIENT
  Age: 58 Year
  Sex: Male

DRUGS (2)
  1. ERYTHROMYCIN [Suspect]
     Indication: PRODUCT USED FOR UNKNOWN INDICATION
     Dosage: 2 G, X 19 DAYS
     Route: 048
  2. ERYTHROMYCIN [Suspect]
     Dosage: UNK
     Route: 042

REACTIONS (2)
  - RENAL IMPAIRMENT [None]
  - OTOTOXICITY [None]
